FAERS Safety Report 5009374-4 (Version None)
Quarter: 2006Q2

REPORT INFORMATION
  Report Type: 
  Country: None (occurrence: None)
  Receive Date: 20060524
  Receipt Date: 20060419
  Transmission Date: 20061013
  Serious: Yes (Death, Other)
  Sender: FDA-Public Use
  Company Number: FRWYE568420APR06

PATIENT
  Sex: Male

DRUGS (1)
  1. ENBREL [Suspect]
     Indication: DRUG USE FOR UNKNOWN INDICATION
     Route: 058

REACTIONS (5)
  - CARDIAC DISORDER [None]
  - COMA HEPATIC [None]
  - GASTROINTESTINAL DISORDER [None]
  - HEPATIC CIRRHOSIS [None]
  - PANCREATIC CARCINOMA [None]
